FAERS Safety Report 15682053 (Version 4)
Quarter: 2020Q1

REPORT INFORMATION
  Report Type: Spontaneous
  Country: ES (occurrence: ES)
  Receive Date: 20181203
  Receipt Date: 20200327
  Transmission Date: 20200409
  Serious: Yes (Other)
  Sender: FDA-Public Use
  Company Number: ES-ASTRAZENECA-2018SF56909

PATIENT
  Age: 87 Year
  Sex: Female
  Weight: 40.8 kg

DRUGS (20)
  1. CARVEDILOL. [Suspect]
     Active Substance: CARVEDILOL
     Route: 065
  2. DEPRAX (TRAZODONE HYDROCHLORIDE) [Suspect]
     Active Substance: TRAZODONE HYDROCHLORIDE
     Route: 065
  3. DESFLURANE. [Suspect]
     Active Substance: DESFLURANE
     Indication: GENERAL ANAESTHESIA
     Route: 065
     Dates: start: 201810
  4. CANDESARTAN. [Suspect]
     Active Substance: CANDESARTAN
     Route: 048
  5. ROCURONIUM BROMIDE. [Suspect]
     Active Substance: ROCURONIUM BROMIDE
     Indication: GENERAL ANAESTHESIA
     Route: 065
     Dates: start: 201810
  6. ADIRO [Suspect]
     Active Substance: ASPIRIN
     Route: 065
  7. FENTANYL. [Suspect]
     Active Substance: FENTANYL
     Indication: GENERAL ANAESTHESIA
     Route: 062
     Dates: start: 201810
  8. LORAZEPAM. [Suspect]
     Active Substance: LORAZEPAM
     Route: 065
  9. TORASEMIDE [Suspect]
     Active Substance: TORSEMIDE
     Route: 065
  10. PROPOFOL. [Suspect]
     Active Substance: PROPOFOL
     Indication: GENERAL ANAESTHESIA
     Route: 042
     Dates: start: 201810
  11. CAFINITRINA [CAFFEINE CITRATE/NITROGLYCERIN/PHENOBARBITAL] [Suspect]
     Active Substance: CAFFEINE CITRATE\NITROGLYCERIN\PHENOBARBITAL
     Route: 065
  12. ALPRAZOLAM. [Suspect]
     Active Substance: ALPRAZOLAM
     Route: 065
  13. HALOPERIDOL. [Suspect]
     Active Substance: HALOPERIDOL
     Route: 065
  14. MANIDIPINE HYDROCHLORIDE [Suspect]
     Active Substance: MANIDIPINE HYDROCHLORIDE
     Route: 065
  15. BRIDION [Suspect]
     Active Substance: SUGAMMADEX
     Indication: NEUROMUSCULAR BLOCKADE REVERSAL
     Dosage: 2.0MG/KG ONCE/SINGLE ADMINISTRATION
     Route: 042
     Dates: start: 20181006, end: 20181006
  16. OMEPRAZOLE. [Suspect]
     Active Substance: OMEPRAZOLE
     Route: 048
  17. ZARELIS RETARD [Suspect]
     Active Substance: VENLAFAXINE HYDROCHLORIDE
     Route: 065
  18. NITROPLAST [Suspect]
     Active Substance: NITROGLYCERIN
     Route: 062
  19. PROLIA [Suspect]
     Active Substance: DENOSUMAB
     Route: 065
  20. CIMASCAL D [Suspect]
     Active Substance: CALCIUM CARBONATE\CHOLECALCIFEROL
     Route: 065

REACTIONS (2)
  - Cardiac arrest [Recovered/Resolved]
  - Bradycardia [Recovered/Resolved]

NARRATIVE: CASE EVENT DATE: 20181006
